FAERS Safety Report 18207659 (Version 13)
Quarter: 2025Q1

REPORT INFORMATION
  Report Type: Spontaneous
  Country: US (occurrence: US)
  Receive Date: 20200828
  Receipt Date: 20250128
  Transmission Date: 20250409
  Serious: No
  Sender: PFIZER
  Company Number: US-PFIZER INC-2020332975

PATIENT
  Age: 62 Year
  Sex: Female
  Weight: 132.9 kg

DRUGS (7)
  1. IBRANCE [Suspect]
     Active Substance: PALBOCICLIB
     Indication: Breast cancer metastatic
     Dates: start: 20200810
  2. IBRANCE [Suspect]
     Active Substance: PALBOCICLIB
     Dates: start: 20200826, end: 20221220
  3. IBRANCE [Suspect]
     Active Substance: PALBOCICLIB
     Route: 048
     Dates: start: 20220624
  4. IBRANCE [Suspect]
     Active Substance: PALBOCICLIB
     Route: 048
     Dates: start: 20241202
  5. IBRANCE [Suspect]
     Active Substance: PALBOCICLIB
  6. FASLODEX [Concomitant]
     Active Substance: FULVESTRANT
  7. FULVESTRANT [Concomitant]
     Active Substance: FULVESTRANT

REACTIONS (26)
  - Neoplasm progression [Recovering/Resolving]
  - Insomnia [Unknown]
  - Fatigue [Unknown]
  - Nausea [Recovering/Resolving]
  - Emotional disorder [Unknown]
  - Asthma [Unknown]
  - Head injury [Unknown]
  - Dizziness [Unknown]
  - COVID-19 [Unknown]
  - Dyspnoea [Not Recovered/Not Resolved]
  - Blood potassium increased [Unknown]
  - Blood creatinine increased [Unknown]
  - Protein total decreased [Unknown]
  - Red blood cell count decreased [Unknown]
  - Haemoglobin decreased [Unknown]
  - Haematocrit decreased [Unknown]
  - Mean cell volume increased [Unknown]
  - Mean cell haemoglobin increased [Unknown]
  - Mean platelet volume decreased [Unknown]
  - Monocyte count decreased [Unknown]
  - Red cell distribution width increased [Unknown]
  - Immature granulocyte count increased [Unknown]
  - Neutrophil count decreased [Unknown]
  - Blood glucose increased [Unknown]
  - White blood cell count decreased [Unknown]
  - Macrocytosis [Unknown]

NARRATIVE: CASE EVENT DATE: 20230912
